FAERS Safety Report 16595694 (Version 2)
Quarter: 2019Q3

REPORT INFORMATION
  Report Type: Spontaneous
  Country: US (occurrence: US)
  Receive Date: 20190719
  Receipt Date: 20190802
  Transmission Date: 20191004
  Serious: Yes (Death, Other)
  Sender: FDA-Public Use
  Company Number: US-ROCHE-2358700

PATIENT
  Age: 88 Year
  Sex: Female

DRUGS (2)
  1. ACTIVASE [Suspect]
     Active Substance: ALTEPLASE
     Indication: FACIAL BONES FRACTURE
  2. ACTIVASE [Suspect]
     Active Substance: ALTEPLASE
     Indication: CEREBROVASCULAR ACCIDENT
     Dosage: 0.9 MG/KG INTRAVENOUS BOLUS FOLLOWED BY INFUSION ;ONGOING: NO
     Route: 042
     Dates: start: 20190707, end: 20190707

REACTIONS (2)
  - Death [Fatal]
  - Periorbital haematoma [Not Recovered/Not Resolved]

NARRATIVE: CASE EVENT DATE: 20190707
